FAERS Safety Report 8312262-9 (Version None)
Quarter: 2012Q2

REPORT INFORMATION
  Report Type: 
  Country: None (occurrence: None)
  Receive Date: 20120425
  Receipt Date: 20120417
  Transmission Date: 20120825
  Serious: Yes (Hospitalization, Other)
  Sender: FDA-Public Use
  Company Number: US-ROXANE LABORATORIES, INC.-2012-RO-01078RO

PATIENT
  Age: 65 Year
  Sex: Female

DRUGS (5)
  1. CITALOPRAM HYDROBROMIDE [Suspect]
     Indication: DEPRESSION
     Dosage: 20 MG
  2. HYDROXYCUT [Suspect]
     Indication: PHYTOTHERAPY
  3. LISINOPRIL [Suspect]
     Indication: HYPERTENSION
     Dosage: 10 MG
  4. PREDNISONE [Suspect]
     Indication: MIGRAINE
  5. SIMVASTATIN [Suspect]
     Indication: HYPERLIPIDAEMIA
     Dosage: 40 MG

REACTIONS (4)
  - HYPERTENSION [None]
  - HYPOTENSION [None]
  - CEREBRAL VASOCONSTRICTION [None]
  - CEREBRAL INFARCTION [None]
